FAERS Safety Report 8205623-X (Version None)
Quarter: 2012Q1

REPORT INFORMATION
  Report Type: 
  Country: None (occurrence: None)
  Receive Date: 20120313
  Receipt Date: 20120229
  Transmission Date: 20120608
  Serious: Yes (Other)
  Sender: FDA-Public Use
  Company Number: DE-BRISTOL-MYERS SQUIBB COMPANY-16434995

PATIENT

DRUGS (1)
  1. SUSTIVA [Suspect]

REACTIONS (2)
  - INJURY [None]
  - ACCIDENT [None]
